FAERS Safety Report 25234574 (Version 1)
Quarter: 2025Q2

REPORT INFORMATION
  Report Type: Spontaneous
  Country: US (occurrence: US)
  Receive Date: 20250424
  Receipt Date: 20250424
  Transmission Date: 20250717
  Serious: Yes (Other)
  Sender: BAYER HEALTHCARE PHARMACEUTICALS INC.
  Company Number: US-BAYER-2025A054719

PATIENT
  Sex: Female

DRUGS (1)
  1. MIRENA [Suspect]
     Active Substance: LEVONORGESTREL
     Dosage: 20?G/DAY
     Route: 015
     Dates: start: 202307, end: 2025

REACTIONS (4)
  - Vaginal haemorrhage [Recovered/Resolved]
  - Pregnancy with contraceptive device [None]
  - Drug ineffective [None]
  - Device expulsion [Recovered/Resolved]

NARRATIVE: CASE EVENT DATE: 20250101
